FAERS Safety Report 4395400-2 (Version None)
Quarter: 2004Q3

REPORT INFORMATION
  Report Type: 
  Country: None (occurrence: None)
  Receive Date: 20040712
  Receipt Date: 20040712
  Transmission Date: 20050211
  Serious: Yes (Hospitalization, Disabling)
  Sender: FDA-Public Use
  Company Number: None

PATIENT
  Age: 28 Year
  Sex: Female
  Weight: 59.4212 kg

DRUGS (1)
  1. DEPO-PROVERA [Suspect]
     Indication: CONTRACEPTION
     Dosage: 1 EVERY 3 MO INTRADERMAL
     Route: 023
     Dates: start: 20030515, end: 20040709

REACTIONS (12)
  - ABDOMINAL PAIN [None]
  - BEDRIDDEN [None]
  - CONSTIPATION [None]
  - DIZZINESS [None]
  - ECONOMIC PROBLEM [None]
  - HORMONE LEVEL ABNORMAL [None]
  - IMPAIRED WORK ABILITY [None]
  - IRRITABLE BOWEL SYNDROME [None]
  - LOSS OF EMPLOYMENT [None]
  - METRORRHAGIA [None]
  - NAUSEA [None]
  - PAIN [None]
